FAERS Safety Report 7200332-8 (Version None)
Quarter: 2010Q4

REPORT INFORMATION
  Report Type: 
  Country: None (occurrence: None)
  Receive Date: 20101228
  Receipt Date: 20101220
  Transmission Date: 20110411
  Serious: Yes (Other)
  Sender: FDA-Public Use
  Company Number: RU-BRISTOL-MYERS SQUIBB COMPANY-15003429

PATIENT
  Age: 36 Year
  Sex: Female

DRUGS (5)
  1. DASATINIB [Suspect]
     Indication: CHRONIC MYELOID LEUKAEMIA
     Dosage: DRUG INTERRUPTED ON  04MAR10.RESTARTED ON 30NOV10 70MG TWICE DAILY
     Route: 048
     Dates: start: 20100101
  2. HYDROXYCARBAMIDE [Suspect]
     Indication: CHRONIC MYELOID LEUKAEMIA
  3. HYDREA [Suspect]
     Dates: start: 20100527, end: 20101101
  4. IMATINIB MESYLATE [Suspect]
     Indication: CHRONIC MYELOID LEUKAEMIA
  5. INTERFERON [Suspect]

REACTIONS (7)
  - CAESAREAN SECTION [None]
  - DRUG EXPOSURE DURING PREGNANCY [None]
  - DRUG RESISTANCE [None]
  - HEADACHE [None]
  - NORMAL NEWBORN [None]
  - PREGNANCY [None]
  - WHITE BLOOD CELL COUNT INCREASED [None]
